FAERS Safety Report 6992131-7 (Version None)
Quarter: 2010Q3

REPORT INFORMATION
  Report Type: 
  Country: None (occurrence: None)
  Receive Date: 20100830
  Receipt Date: 20100614
  Transmission Date: 20110219
  Serious: No
  Sender: FDA-Public Use
  Company Number: 2010074969

PATIENT
  Age: 66 Year
  Sex: Female
  Weight: 76.6 kg

DRUGS (4)
  1. TOVIAZ [Suspect]
     Indication: HYPERTONIC BLADDER
     Dosage: 4 MG, DAILY, ORAL ; 8 MG, TWO 4 MG TABLETS DAILY AT NIGHT
     Route: 048
     Dates: start: 20100501
  2. SIMVASTATIN [Concomitant]
  3. NEXIUM [Concomitant]
  4. FOSAMAX [Concomitant]

REACTIONS (3)
  - DRUG INEFFECTIVE [None]
  - FEELING ABNORMAL [None]
  - HEAD DISCOMFORT [None]
